FAERS Safety Report 13901864 (Version 1)
Quarter: 2017Q3

REPORT INFORMATION
  Report Type: Spontaneous
  Country: US (occurrence: US)
  Receive Date: 20170824
  Receipt Date: 20170824
  Transmission Date: 20171127
  Serious: No
  Sender: FDA-Public Use
  Company Number: US-ROCHE-1126091

PATIENT
  Age: 47 Year
  Sex: Female
  Weight: 72 kg

DRUGS (9)
  1. DIPHENHYDRAMINE. [Concomitant]
     Active Substance: DIPHENHYDRAMINE
     Route: 042
  2. TYLENOL [Concomitant]
     Active Substance: ACETAMINOPHEN
     Route: 048
  3. XELODA [Concomitant]
     Active Substance: CAPECITABINE
     Route: 065
  4. DEMEROL [Concomitant]
     Active Substance: MEPERIDINE HYDROCHLORIDE
     Route: 042
  5. HERCEPTIN [Suspect]
     Active Substance: TRASTUZUMAB
     Indication: BREAST CANCER METASTATIC
     Dosage: RE BOLUS
     Route: 065
  6. DIPHENHYDRAMINE. [Concomitant]
     Active Substance: DIPHENHYDRAMINE
     Route: 048
  7. SAMARIUM-153 [Concomitant]
     Route: 065
     Dates: start: 19981014
  8. HERCEPTIN [Suspect]
     Active Substance: TRASTUZUMAB
     Route: 065
  9. AMPICILLIN [Concomitant]
     Active Substance: AMPICILLIN
     Route: 048

REACTIONS (4)
  - Disease progression [Unknown]
  - Facial pain [Unknown]
  - Infection [Unknown]
  - Bone pain [Unknown]

NARRATIVE: CASE EVENT DATE: 19980921
